FAERS Safety Report 7338590-1 (Version None)
Quarter: 2011Q1

REPORT INFORMATION
  Report Type: 
  Country: None (occurrence: None)
  Receive Date: 20110304
  Receipt Date: 20110304
  Transmission Date: 20110831
  Serious: No
  Sender: FDA-Public Use
  Company Number: None

PATIENT
  Sex: Female
  Weight: 108.8633 kg

DRUGS (1)
  1. PANTOPRAZOLE [Suspect]
     Dosage: 40 MG PO

REACTIONS (3)
  - NO THERAPEUTIC RESPONSE [None]
  - ILL-DEFINED DISORDER [None]
  - PRODUCT SUBSTITUTION ISSUE [None]
